FAERS Safety Report 18282730 (Version 4)
Quarter: 2021Q3

REPORT INFORMATION
  Report Type: Spontaneous
  Country: FR (occurrence: FR)
  Receive Date: 20200918
  Receipt Date: 20210726
  Transmission Date: 20211014
  Serious: Yes (Hospitalization, Other)
  Sender: FDA-Public Use
  Company Number: FR-MYLANLABS-2020M1079312

PATIENT
  Sex: Male

DRUGS (2)
  1. SUBUTEX [Suspect]
     Active Substance: BUPRENORPHINE HYDROCHLORIDE
     Indication: PRODUCT USED FOR UNKNOWN INDICATION
     Dosage: UNK
  2. NALMEFENE [Interacting]
     Active Substance: NALMEFENE
     Indication: ALCOHOLISM
     Dosage: UNK

REACTIONS (4)
  - Contraindicated product administered [Unknown]
  - Drug interaction [Unknown]
  - Drug dependence [Unknown]
  - Drug withdrawal syndrome [Unknown]
